FAERS Safety Report 16677793 (Version 1)
Quarter: 2019Q3

REPORT INFORMATION
  Report Type: Spontaneous
  Country: US (occurrence: US)
  Receive Date: 20190806
  Receipt Date: 20190806
  Transmission Date: 20191004
  Serious: Yes (Other)
  Sender: FDA-Public Use
  Company Number: None

PATIENT
  Age: 82 Year
  Sex: Male
  Weight: 65.77 kg

DRUGS (12)
  1. PREDNISOLONE ACETATE P-F 1% [Concomitant]
  2. SPIRVA RESPIMAT 1.25 [Concomitant]
  3. LUPRON DEPOT 1-MONTH [Concomitant]
  4. ABIRATERONE ACETATE. [Suspect]
     Active Substance: ABIRATERONE ACETATE
     Indication: PROSTATE CANCER
     Route: 048
     Dates: start: 20190611
  5. FLOMAX 0.4MG [Concomitant]
  6. XGEVA [Concomitant]
     Active Substance: DENOSUMAB
  7. DULERA 200-5 [Concomitant]
  8. FOLIC ACID 1MG [Concomitant]
     Active Substance: FOLIC ACID
  9. VITAMIN B12 3000MCG [Concomitant]
  10. ZOFRAN 4MG [Concomitant]
  11. FLAX SEED OIL 1300MG [Concomitant]
  12. PREDINSONE 5MG [Concomitant]

REACTIONS (1)
  - Muscle spasms [None]

NARRATIVE: CASE EVENT DATE: 20190804
